FAERS Safety Report 6709464-1 (Version None)
Quarter: 2010Q2

REPORT INFORMATION
  Report Type: 
  Country: None (occurrence: None)
  Receive Date: 20100428
  Receipt Date: 20091215
  Transmission Date: 20101027
  Serious: No
  Sender: FDA-Public Use
  Company Number: 2009-00813

PATIENT
  Sex: Female

DRUGS (1)
  1. COLD REMEDY NASAL GEL [Suspect]
     Dosage: AS DIRECTED
     Dates: start: 20090301, end: 20091201

REACTIONS (2)
  - ANOSMIA [None]
  - NASAL DISCOMFORT [None]
